FAERS Safety Report 24253011 (Version 2)
Quarter: 2024Q3

REPORT INFORMATION
  Report Type: Spontaneous
  Country: JP (occurrence: JP)
  Receive Date: 20240827
  Receipt Date: 20240906
  Transmission Date: 20241016
  Serious: Yes (Hospitalization, Other)
  Sender: UCB
  Company Number: JP-UCBJ-CD202407565UCBPHAPROD

PATIENT
  Age: 57 Year
  Sex: Male

DRUGS (1)
  1. VIMPAT [Suspect]
     Active Substance: LACOSAMIDE
     Indication: Product used for unknown indication
     Dosage: UNK
     Route: 048
     Dates: start: 202308

REACTIONS (3)
  - Epilepsy [Unknown]
  - Meningioma [Unknown]
  - Meningioma surgery [Unknown]

NARRATIVE: CASE EVENT DATE: 20231010
